FAERS Safety Report 12639085 (Version 1)
Quarter: 2016Q3

REPORT INFORMATION
  Report Type: Spontaneous
  Country: US (occurrence: US)
  Receive Date: 20160809
  Receipt Date: 20160809
  Transmission Date: 20161109
  Serious: No
  Sender: FDA-Public Use
  Company Number: US-BRISTOL-MYERS SQUIBB COMPANY-BMS-2016-062144

PATIENT
  Sex: Female
  Weight: 45 kg

DRUGS (2)
  1. ELIQUIS [Suspect]
     Active Substance: APIXABAN
     Dosage: 2.5 MG, BID
     Route: 048
  2. ELIQUIS [Suspect]
     Active Substance: APIXABAN
     Indication: THROMBOSIS PROPHYLAXIS
     Dosage: 5 MG, BID
     Route: 048
     Dates: start: 20160711

REACTIONS (7)
  - Pain in extremity [Unknown]
  - Weight decreased [Unknown]
  - Fall [Unknown]
  - Dizziness [Unknown]
  - Back pain [Unknown]
  - Vertigo [Unknown]
  - Contusion [Unknown]
